FAERS Safety Report 24941243 (Version 1)
Quarter: 2025Q1

REPORT INFORMATION
  Report Type: Spontaneous
  Country: BR (occurrence: BR)
  Receive Date: 20250207
  Receipt Date: 20250207
  Transmission Date: 20250408
  Serious: Yes (Hospitalization, Other)
  Sender: RANBAXY
  Company Number: BR-SUN PHARMACEUTICAL INDUSTRIES LTD-2025R1-492415

PATIENT
  Age: 18 Year
  Sex: Male

DRUGS (1)
  1. PAZOPANIB [Suspect]
     Active Substance: PAZOPANIB
     Indication: Mucosal inflammation
     Dosage: 800 MILLIGRAM, QD
     Route: 065

REACTIONS (3)
  - Erysipelas [Unknown]
  - Soft tissue infection [Unknown]
  - Therapy partial responder [Unknown]
